FAERS Safety Report 23961997 (Version 1)
Quarter: 2024Q2

REPORT INFORMATION
  Report Type: Spontaneous
  Country: US (occurrence: US)
  Receive Date: 20240611
  Receipt Date: 20240611
  Transmission Date: 20240716
  Serious: No
  Sender: FDA-Public Use
  Company Number: US-RIGEL PHARMACEUTICALS, INC.-2023FOS000508

PATIENT
  Sex: Female
  Weight: 58.503 kg

DRUGS (3)
  1. TAVALISSE [Suspect]
     Active Substance: FOSTAMATINIB
     Indication: Breast cancer female
     Dosage: 100 MG, BID
     Route: 048
     Dates: start: 2023
  2. TAVALISSE [Suspect]
     Active Substance: FOSTAMATINIB
     Indication: Pancytopenia
     Dosage: 100 MG, BID
     Route: 048
     Dates: start: 20230207, end: 2023
  3. TAVALISSE [Suspect]
     Active Substance: FOSTAMATINIB
     Indication: Platelet count decreased

REACTIONS (3)
  - Product dose omission issue [Unknown]
  - Off label use [Unknown]
  - Product use issue [Unknown]

NARRATIVE: CASE EVENT DATE: 20230101
